FAERS Safety Report 6122879-8 (Version None)
Quarter: 2009Q1

REPORT INFORMATION
  Report Type: 
  Country: None (occurrence: None)
  Receive Date: 20090318
  Receipt Date: 20080812
  Transmission Date: 20090719
  Serious: No
  Sender: FDA-Public Use
  Company Number: US-AMGEN-KDL298447

PATIENT
  Sex: Female

DRUGS (3)
  1. NEULASTA [Suspect]
     Indication: CHEMOTHERAPY
     Route: 058
     Dates: start: 20080711, end: 20080711
  2. EMEND [Concomitant]
     Dates: start: 20080710
  3. DEXAMETHASONE TAB [Concomitant]
     Dates: start: 20080709

REACTIONS (3)
  - BACK PAIN [None]
  - BONE PAIN [None]
  - PAIN [None]
